FAERS Safety Report 7007864-6 (Version None)
Quarter: 2010Q3

REPORT INFORMATION
  Report Type: 
  Country: None (occurrence: None)
  Receive Date: 20100920
  Receipt Date: 20100906
  Transmission Date: 20110219
  Serious: Yes (Hospitalization)
  Sender: FDA-Public Use
  Company Number: TIF2010A00097

PATIENT
  Sex: Female

DRUGS (3)
  1. LANSOPRAZOLE [Suspect]
     Dosage: ORAL
     Route: 048
     Dates: start: 20100801
  2. TRIATEC HCT (RAMIPRIL) [Suspect]
     Dosage: ORAL
     Route: 048
  3. RAMIPRIL [Suspect]
     Dosage: (2.5 MG) ORAL
     Route: 048

REACTIONS (1)
  - DYSENTERY [None]
